FAERS Safety Report 7657066-5 (Version None)
Quarter: 2011Q3

REPORT INFORMATION
  Report Type: 
  Country: None (occurrence: None)
  Receive Date: 20110804
  Receipt Date: 20100611
  Transmission Date: 20111222
  Serious: No
  Sender: FDA-Public Use
  Company Number: US-GLAXOSMITHKLINE-A0864541A

PATIENT
  Sex: Female

DRUGS (1)
  1. ADVAIR DISKUS 100/50 [Suspect]
     Dates: start: 20100610

REACTIONS (4)
  - LIP SWELLING [None]
  - EYE SWELLING [None]
  - OROPHARYNGEAL PAIN [None]
  - HEART RATE INCREASED [None]
